FAERS Safety Report 7929945-2 (Version None)
Quarter: 2011Q4

REPORT INFORMATION
  Report Type: 
  Country: None (occurrence: None)
  Receive Date: 20111117
  Receipt Date: 20111107
  Transmission Date: 20120403
  Serious: Yes (Death, Hospitalization)
  Sender: FDA-Public Use
  Company Number: 1000025110

PATIENT
  Age: 66 Year
  Sex: Male

DRUGS (2)
  1. DILTIAZEM [Suspect]
  2. COLCHICINE [Suspect]

REACTIONS (1)
  - DRUG INTERACTION [None]
